FAERS Safety Report 16229137 (Version 4)
Quarter: 2019Q3

REPORT INFORMATION
  Report Type: Report from Study
  Country: US (occurrence: US)
  Receive Date: 20190423
  Receipt Date: 20190731
  Transmission Date: 20191004
  Serious: Yes (Hospitalization, Other)
  Sender: FDA-Public Use
  Company Number: US-GILEAD-2019-0403646

PATIENT
  Age: 34 Year
  Sex: Female

DRUGS (2)
  1. AZTREONAM LYSINE [Suspect]
     Active Substance: AZTREONAM LYSINE
     Indication: CYSTIC FIBROSIS
     Dosage: 75 MG, TID FOR 28 DAYS ON AND 28 DAYS OFF. REPEAT
     Dates: start: 20180625
  2. AZTREONAM LYSINE [Suspect]
     Active Substance: AZTREONAM LYSINE
     Indication: PSEUDOMONAS INFECTION

REACTIONS (6)
  - Pseudomonas infection [Unknown]
  - Cystic fibrosis [Not Recovered/Not Resolved]
  - Cystic fibrosis [Unknown]
  - Mycobacterium avium complex infection [Unknown]
  - Drug resistance [Not Recovered/Not Resolved]
  - Escherichia infection [Unknown]
